FAERS Safety Report 8010998-0 (Version None)
Quarter: 2011Q4

REPORT INFORMATION
  Report Type: 
  Country: None (occurrence: None)
  Receive Date: 20111228
  Receipt Date: 20111220
  Transmission Date: 20120403
  Serious: Yes (Life-Threatening, Other)
  Sender: FDA-Public Use
  Company Number: JP-PFIZER INC-2011274862

PATIENT
  Age: 70 Year
  Sex: Female
  Weight: 34.5 kg

DRUGS (11)
  1. MEXITIL [Concomitant]
     Dosage: 100 MG, 2X/DAY
     Route: 048
     Dates: start: 20110801, end: 20111031
  2. CANDESARTAN CILEXETIL [Concomitant]
     Dosage: 8 MG, 1X/DAY
     Route: 048
     Dates: start: 20110801, end: 20111031
  3. CELECOXIB [Concomitant]
     Dosage: 100 MG, 2X/DAY
     Route: 048
     Dates: start: 20110801
  4. MOTILIUM [Concomitant]
     Dosage: 10 MG, 3X/DAY
     Route: 048
     Dates: start: 20110801, end: 20111031
  5. POLARAMINE [Concomitant]
     Indication: PROPHYLAXIS
     Dosage: 5 MG, 1X/DAY
     Route: 042
  6. GASLON [Concomitant]
     Dosage: 4 MG, 1X/DAY
     Route: 048
     Dates: start: 20110801, end: 20111031
  7. NESINA [Concomitant]
     Dosage: 12.5 MG, 1X/DAY
     Route: 048
     Dates: start: 20110801, end: 20111031
  8. FENTOS TAPE [Concomitant]
     Dosage: UNK
     Dates: start: 20110801
  9. PINERORO [Concomitant]
     Dosage: 25 MG, 3X/DAY
     Route: 048
     Dates: start: 20110801, end: 20111031
  10. TEMSIROLIMUS [Suspect]
     Indication: RENAL CELL CARCINOMA
     Dosage: 25 MG, WEEKLY
     Route: 042
     Dates: start: 20111017, end: 20111031
  11. ACETAMINOPHEN [Concomitant]
     Dosage: 400 MG, 3X/DAY
     Route: 048
     Dates: start: 20110801

REACTIONS (3)
  - BACTERAEMIA [None]
  - RENAL FAILURE ACUTE [None]
  - STOMATITIS [None]
